FAERS Safety Report 23937215 (Version 1)
Quarter: 2024Q2

REPORT INFORMATION
  Report Type: Spontaneous
  Country: GB (occurrence: GB)
  Receive Date: 20240604
  Receipt Date: 20240604
  Transmission Date: 20240716
  Serious: Yes (Other)
  Sender: FDA-Public Use
  Company Number: None

PATIENT
  Sex: Male
  Weight: 79 kg

DRUGS (1)
  1. TRUVADA [Suspect]
     Active Substance: EMTRICITABINE\TENOFOVIR DISOPROXIL FUMARATE
     Indication: Prophylaxis against HIV infection
     Dosage: 1 PILL DAILY
     Route: 065
     Dates: start: 202202, end: 202402

REACTIONS (1)
  - Guttate psoriasis [Recovered/Resolved with Sequelae]

NARRATIVE: CASE EVENT DATE: 20220501
